FAERS Safety Report 14527016 (Version 1)
Quarter: 2018Q1

REPORT INFORMATION
  Report Type: Spontaneous
  Country: US (occurrence: US)
  Receive Date: 20180212
  Receipt Date: 20180212
  Transmission Date: 20180509
  Serious: Yes (Life-Threatening)
  Sender: FDA-Public Use
  Company Number: None

PATIENT
  Age: 61 Year
  Sex: Female
  Weight: 105 kg

DRUGS (1)
  1. PROMETHAZINE [Suspect]
     Active Substance: PROMETHAZINE\PROMETHAZINE HYDROCHLORIDE
     Indication: NAUSEA
     Dosage: ?          OTHER FREQUENCY:ONCE;?
     Route: 042

REACTIONS (7)
  - Asthenia [None]
  - Apnoea [None]
  - Hypopnoea [None]
  - Cardiac arrest [None]
  - Cardio-respiratory arrest [None]
  - Brain injury [None]
  - Unresponsive to stimuli [None]

NARRATIVE: CASE EVENT DATE: 20180209
